FAERS Safety Report 6890917-0 (Version None)
Quarter: 2010Q3

REPORT INFORMATION
  Report Type: 
  Country: None (occurrence: None)
  Receive Date: 20100731
  Receipt Date: 20090413
  Transmission Date: 20110219
  Serious: No
  Sender: FDA-Public Use
  Company Number: US-PFIZER INC-2009164783

PATIENT
  Sex: Female

DRUGS (1)
  1. LIPITOR [Suspect]
     Dates: start: 20050101

REACTIONS (4)
  - ABDOMINAL PAIN [None]
  - BACK PAIN [None]
  - FLATULENCE [None]
  - SINUSITIS [None]
